FAERS Safety Report 25258084 (Version 3)
Quarter: 2025Q2

REPORT INFORMATION
  Report Type: Report from Study
  Country: US (occurrence: US)
  Receive Date: 20250501
  Receipt Date: 20250616
  Transmission Date: 20250717
  Serious: Yes (Hospitalization, Other)
  Sender: ABBVIE
  Company Number: US-ABBVIE-6258020

PATIENT
  Age: 71 Year
  Sex: Female
  Weight: 68 kg

DRUGS (3)
  1. LUMIGAN [Suspect]
     Active Substance: BIMATOPROST
     Indication: Glaucoma
     Dosage: PATIENT ROA: OPHTHALMIC?ONE DROP ON EACH EYE?AT BEDTIME ONLY?FORM STRENGTH: 0.01 PERCENT
     Route: 047
     Dates: start: 200706
  2. METOPROLOL [Concomitant]
     Active Substance: METOPROLOL
     Indication: Atrial fibrillation
     Dosage: FORM STRENGTH: 25?FORM STRENGTH UNITS: MILLIGRAM
  3. XARELTO [Concomitant]
     Active Substance: RIVAROXABAN
     Indication: Atrial fibrillation
     Dosage: FORM STRENGTH: 20?FORM STRENGTH UNITS: MILLIGRAM

REACTIONS (2)
  - Breast cancer [Recovering/Resolving]
  - Weight increased [Recovering/Resolving]

NARRATIVE: CASE EVENT DATE: 20240501
